FAERS Safety Report 24172120 (Version 1)
Quarter: 2024Q3

REPORT INFORMATION
  Report Type: Spontaneous
  Country: US (occurrence: None)
  Receive Date: 20240805
  Receipt Date: 20240805
  Transmission Date: 20241017
  Serious: No
  Sender: Public
  Company Number: None

PATIENT
  Sex: Female

DRUGS (11)
  1. HUMIRA [Suspect]
     Active Substance: ADALIMUMAB
     Indication: Rheumatoid arthritis
     Route: 058
  2. AZITHROMYCIN [Concomitant]
     Active Substance: AZITHROMYCIN
  3. BENZONATATE CAP100MG [Concomitant]
  4. ELETRIPTAN [Concomitant]
     Active Substance: ELETRIPTAN
  5. FLUOCIN ACET OIL SCALP [Concomitant]
  6. FOLIC ACID TAB [Concomitant]
  7. LORAZEPAM TAB [Concomitant]
  8. MELOXICAM [Concomitant]
     Active Substance: MELOXICAM
  9. METHOTREXATE [Concomitant]
     Active Substance: METHOTREXATE
  10. ONDANSETRON TAB [Concomitant]
  11. ONDANSETRON [Concomitant]
     Active Substance: ONDANSETRON

REACTIONS (2)
  - COVID-19 [None]
  - Therapy interrupted [None]
